FAERS Safety Report 9490733 (Version 1)
Quarter: 2013Q3

REPORT INFORMATION
  Report Type: Spontaneous
  Country: US (occurrence: None)
  Receive Date: 20130828
  Receipt Date: 20130828
  Transmission Date: 20140515
  Serious: No
  Sender: FDA-Public Use
  Company Number: None

PATIENT
  Age: 56 Year
  Sex: Male
  Weight: 107.73 kg

DRUGS (11)
  1. 5-FLUOROURACIL (5-FU) [Suspect]
  2. BEVACIZUMAB (RHUMAB VEGF) (704865) [Suspect]
  3. LEUCOVORIN CALCIUM [Suspect]
  4. OXALIPLATIN (ELOXATIN) [Suspect]
  5. ACYCLOVIR [Concomitant]
  6. BISACODYL [Concomitant]
  7. TERBINAFINE HCL [Concomitant]
  8. ASPIRIN [Concomitant]
  9. HYDROCODONE [Concomitant]
  10. LORAZEPAM [Concomitant]
  11. METOPROLOL SUCCINATE [Concomitant]

REACTIONS (4)
  - Nausea [None]
  - Vomiting [None]
  - Diarrhoea [None]
  - Epistaxis [None]
